FAERS Safety Report 4740226-0 (Version None)
Quarter: 2005Q3

REPORT INFORMATION
  Report Type: 
  Country: None (occurrence: None)
  Receive Date: 20050810
  Receipt Date: 20050302
  Transmission Date: 20060218
  Serious: No
  Sender: FDA-Public Use
  Company Number: US-GLAXOSMITHKLINE-A0547963A

PATIENT
  Age: 24 Year
  Sex: Male

DRUGS (3)
  1. PAXIL [Suspect]
     Indication: BIPOLAR DISORDER
     Route: 048
     Dates: start: 20010101
  2. SLIMMING TABLETS [Suspect]
     Dates: start: 20050201, end: 20050228
  3. ZYPREXA [Concomitant]

REACTIONS (1)
  - THINKING ABNORMAL [None]
